FAERS Safety Report 6805713-X (Version None)
Quarter: 2010Q2

REPORT INFORMATION
  Report Type: 
  Country: None (occurrence: None)
  Receive Date: 20100628
  Receipt Date: 20080723
  Transmission Date: 20101027
  Serious: No
  Sender: FDA-Public Use
  Company Number: US-PFIZER INC-2008061886

PATIENT
  Age: 75 Year
  Sex: Male
  Weight: 71.8 kg

DRUGS (1)
  1. SUTENT [Suspect]
     Indication: RENAL CANCER METASTATIC
     Dates: start: 20080701

REACTIONS (1)
  - PLATELET COUNT DECREASED [None]
